FAERS Safety Report 6543679-0 (Version None)
Quarter: 2010Q1

REPORT INFORMATION
  Report Type: 
  Country: None (occurrence: None)
  Receive Date: 20100120
  Receipt Date: 20100111
  Transmission Date: 20100710
  Serious: Yes (Death)
  Sender: FDA-Public Use
  Company Number: GXKR2007GB09175

PATIENT
  Age: 72 Year
  Sex: Female

DRUGS (6)
  1. MIRTAZAPINE [Suspect]
     Indication: AGITATION
     Dosage: 30 MG, UNK
     Route: 048
     Dates: start: 20070907
  2. MIRTAZAPINE [Suspect]
     Indication: DEPRESSION
  3. RISPERIDONE (NGX) [Suspect]
     Indication: DEPRESSION
     Dosage: 1 MG, UNK
     Route: 048
     Dates: start: 20070907
  4. RISPERIDONE (NGX) [Suspect]
     Indication: AGITATION
  5. LORAZEPAM [Concomitant]
     Indication: AGITATION
     Dosage: 1 MG, TID
     Route: 048
     Dates: start: 20070810, end: 20070827
  6. QUETIAPINE [Concomitant]
     Indication: AGITATION
     Dosage: 200 MG, BID
     Route: 048
     Dates: start: 20070810, end: 20070907

REACTIONS (1)
  - CEREBROVASCULAR ACCIDENT [None]
